FAERS Safety Report 5932773-0 (Version None)
Quarter: 2008Q4

REPORT INFORMATION
  Report Type: 
  Country: None (occurrence: None)
  Receive Date: 20081028
  Receipt Date: 20081027
  Transmission Date: 20090506
  Serious: Yes (Other)
  Sender: FDA-Public Use
  Company Number: A0753683A

PATIENT
  Age: 78 Year
  Sex: Female

DRUGS (7)
  1. ADVAIR DISKUS 100/50 [Suspect]
     Indication: PNEUMONIA
     Route: 055
     Dates: start: 20070101, end: 20071201
  2. SYNTHROID [Suspect]
     Indication: THYROID DISORDER
     Dosage: .075MG PER DAY
     Route: 048
  3. SYNTHROID [Concomitant]
  4. CELEBREX [Concomitant]
  5. COMBIVENT [Concomitant]
  6. ADALAT [Concomitant]
  7. DIURETIC [Concomitant]

REACTIONS (11)
  - BLOOD CREATININE INCREASED [None]
  - CONFUSIONAL STATE [None]
  - CONSTIPATION [None]
  - DRUG INTERACTION [None]
  - DYSGRAPHIA [None]
  - FEELING ABNORMAL [None]
  - RENAL PAIN [None]
  - SLEEP DISORDER [None]
  - SOMNOLENCE [None]
  - TREMOR [None]
  - URINARY TRACT DISORDER [None]
